FAERS Safety Report 7356943-2 (Version None)
Quarter: 2011Q1

REPORT INFORMATION
  Report Type: 
  Country: None (occurrence: None)
  Receive Date: 20110317
  Receipt Date: 20110310
  Transmission Date: 20110831
  Serious: No
  Sender: FDA-Public Use
  Company Number: US-BIOGENIDEC-2011BI009471

PATIENT
  Age: 39 Year
  Sex: Female

DRUGS (2)
  1. TYSABRI [Suspect]
     Indication: CROHN'S DISEASE
     Route: 042
     Dates: start: 20110309
  2. PAIN MEDICATION (NOS) [Concomitant]
     Indication: CROHN'S DISEASE

REACTIONS (1)
  - FATIGUE [None]
